FAERS Safety Report 24683932 (Version 1)
Quarter: 2024Q4

REPORT INFORMATION
  Report Type: Spontaneous
  Country: US (occurrence: US)
  Receive Date: 20241202
  Receipt Date: 20241202
  Transmission Date: 20250115
  Serious: No
  Sender: ELI LILLY AND COMPANY
  Company Number: US-ELI_LILLY_AND_COMPANY-US202411013192

PATIENT
  Age: 59 Year
  Sex: Female

DRUGS (1)
  1. ZEPBOUND [Suspect]
     Active Substance: TIRZEPATIDE
     Indication: Weight control
     Dosage: 2.5 MG, UNKNOWN
     Route: 058

REACTIONS (8)
  - Oropharyngeal discomfort [Recovered/Resolved]
  - Dehydration [Recovered/Resolved]
  - Lip pain [Recovered/Resolved]
  - Cheilitis [Recovered/Resolved]
  - Flushing [Recovered/Resolved]
  - Oral pain [Recovered/Resolved]
  - Dry mouth [Recovered/Resolved]
  - Hypersensitivity [Recovered/Resolved]
